FAERS Safety Report 5651034-0 (Version None)
Quarter: 2008Q1

REPORT INFORMATION
  Report Type: 
  Country: None (occurrence: None)
  Receive Date: 20080305
  Receipt Date: 20080228
  Transmission Date: 20080703
  Serious: Yes (Other)
  Sender: FDA-Public Use
  Company Number: A0712463A

PATIENT
  Sex: Female

DRUGS (7)
  1. ADVAIR DISKUS 100/50 [Suspect]
     Indication: CYSTIC FIBROSIS
     Dosage: 2PUFF TWICE PER DAY
     Route: 055
     Dates: start: 20070601
  2. ADVAIR DISKUS 100/50 [Suspect]
     Dosage: 1PUFF TWICE PER DAY
     Route: 055
     Dates: start: 20050301, end: 20070601
  3. XOPENEX [Concomitant]
  4. ALLEGRA D 24 HOUR [Concomitant]
  5. MURO 128 OINTMENT [Concomitant]
  6. MURO [Concomitant]
  7. RESTASIS [Concomitant]

REACTIONS (8)
  - CATARACT [None]
  - CORNEAL DYSTROPHY [None]
  - DRY EYE [None]
  - DYSPHONIA [None]
  - HEADACHE [None]
  - HEART RATE INCREASED [None]
  - HYPOAESTHESIA [None]
  - TREMOR [None]
